FAERS Safety Report 8535121-5 (Version None)
Quarter: 2012Q3

REPORT INFORMATION
  Report Type: 
  Country: None (occurrence: None)
  Receive Date: 20120724
  Receipt Date: 20120713
  Transmission Date: 20120928
  Serious: Yes (Other)
  Sender: FDA-Public Use
  Company Number: GB-PFIZER INC-2012168108

PATIENT
  Age: 73 Year
  Sex: Male

DRUGS (6)
  1. LORAZEPAM [Concomitant]
     Dosage: 2 MG, UNK
     Route: 042
  2. PHENYTOIN SODIUM [Suspect]
     Indication: EPILEPSY
     Dosage: 500 MG OVER 30 MIN (16.6 MG/MIN)
     Route: 042
  3. DIAZEPAM [Concomitant]
     Dosage: TWO 10 MG DOSES, OVERNIGHT
     Route: 054
  4. PHENOBARBITAL SODIUM [Concomitant]
     Dosage: 90 MG STAT DOSE
     Route: 042
  5. PHENOBARBITAL SODIUM [Concomitant]
     Dosage: 30 MG, 3X/DAY
     Route: 042
  6. PHENYTOIN SODIUM [Suspect]
     Dosage: 100 MG IN THE MORNING, 100 MG AT LUNCHTIME AND 200 MG IN THE EVENING
     Route: 042

REACTIONS (1)
  - PURPLE GLOVE SYNDROME [None]
